FAERS Safety Report 4405320-2 (Version None)
Quarter: 2004Q3

REPORT INFORMATION
  Report Type: 
  Country: None (occurrence: None)
  Receive Date: 20040720
  Receipt Date: 20040713
  Transmission Date: 20050211
  Serious: Yes (Life-Threatening, Hospitalization, Other)
  Sender: FDA-Public Use
  Company Number: GBWYE902214JUL04

PATIENT
  Age: 84 Year
  Sex: Female

DRUGS (7)
  1. MINOCIN [Suspect]
     Indication: PEMPHIGOID
     Dosage: 100 MG, FREQUENCY UNKNOWN, ORAL
     Route: 048
     Dates: start: 20040521, end: 20040625
  2. FOSAMAX [Concomitant]
  3. PREDNISOLONE [Concomitant]
  4. LANSOPRAZOLE [Concomitant]
  5. AMLODIPINE [Concomitant]
  6. DIGOXIN [Concomitant]
  7. MULTIVITAMINS, PLAIN [Concomitant]

REACTIONS (2)
  - NEUTROPENIA [None]
  - STREPTOCOCCAL SEPSIS [None]
